FAERS Safety Report 17287498 (Version 1)
Quarter: 2020Q1

REPORT INFORMATION
  Report Type: Spontaneous
  Country: US (occurrence: US)
  Receive Date: 20200120
  Receipt Date: 20200120
  Transmission Date: 20200409
  Serious: Yes (Death, Hospitalization)
  Sender: FDA-Public Use
  Company Number: US-HBP-2019US020098

PATIENT
  Age: 72 Year
  Sex: Female
  Weight: 60.3 kg

DRUGS (6)
  1. IMODIUM [Suspect]
     Active Substance: LOPERAMIDE HYDROCHLORIDE
     Indication: PRODUCT USED FOR UNKNOWN INDICATION
     Dosage: UNK
  2. OLAPARIB. [Suspect]
     Active Substance: OLAPARIB
     Dosage: 300 MILLIGRAM, BID
     Route: 048
     Dates: start: 20190117, end: 20190213
  3. OLAPARIB. [Suspect]
     Active Substance: OLAPARIB
     Indication: OVARIAN EPITHELIAL CANCER
     Dosage: 300 MILLIGRAM, TWICE 7 DAYS CYCLE
     Route: 048
     Dates: start: 20191018
  4. ZOFRAN [Suspect]
     Active Substance: ONDANSETRON HYDROCHLORIDE
     Indication: PRODUCT USED FOR UNKNOWN INDICATION
  5. ONALESPIB [Suspect]
     Active Substance: ONALESPIB
     Indication: OVARIAN EPITHELIAL CANCER
     Dosage: 40 MILLIGRAM/M2 OVER 1H ON DAYS 1,2,8,9,15,16
     Route: 042
     Dates: end: 20190201
  6. ALOXI [Suspect]
     Active Substance: PALONOSETRON HYDROCHLORIDE
     Indication: PRODUCT USED FOR UNKNOWN INDICATION

REACTIONS (3)
  - Large intestinal obstruction [Recovered/Resolved with Sequelae]
  - Abdominal pain [Recovered/Resolved with Sequelae]
  - Disease progression [Fatal]

NARRATIVE: CASE EVENT DATE: 20190220
